FAERS Safety Report 8306900-4 (Version None)
Quarter: 2012Q2

REPORT INFORMATION
  Report Type: 
  Country: None (occurrence: None)
  Receive Date: 20120424
  Receipt Date: 20120412
  Transmission Date: 20120825
  Serious: Yes (Hospitalization)
  Sender: FDA-Public Use
  Company Number: SE-JNJFOC-20120400947

PATIENT
  Age: 26 Year
  Sex: Female

DRUGS (3)
  1. REMICADE [Suspect]
     Indication: ANKYLOSING SPONDYLITIS
     Dosage: AS NECESSARY
     Route: 042
  2. REMICADE [Suspect]
     Route: 042
     Dates: start: 20100705, end: 20110207
  3. UNKNOWN MEDICATION [Concomitant]
     Route: 065

REACTIONS (4)
  - BALANCE DISORDER [None]
  - HYPOAESTHESIA [None]
  - DEMYELINATION [None]
  - VIRAL INFECTION [None]
